FAERS Safety Report 8227336-0 (Version None)
Quarter: 2012Q1

REPORT INFORMATION
  Report Type: 
  Country: None (occurrence: None)
  Receive Date: 20120322
  Receipt Date: 20120316
  Transmission Date: 20120608
  Serious: Yes (Hospitalization)
  Sender: FDA-Public Use
  Company Number: PHEH2012US003956

PATIENT
  Sex: Male

DRUGS (1)
  1. TEGRETOL-XR [Suspect]
     Dosage: UNK UKN, UNK
     Route: 048

REACTIONS (1)
  - CONVULSION [None]
